FAERS Safety Report 8547829-6 (Version None)
Quarter: 2012Q3

REPORT INFORMATION
  Report Type: 
  Country: None (occurrence: None)
  Receive Date: 20120727
  Receipt Date: 20120406
  Transmission Date: 20120928
  Serious: Yes (Other)
  Sender: FDA-Public Use
  Company Number: US-ASTRAZENECA-2012SE13878

PATIENT
  Age: 16917 Day
  Sex: Female
  Weight: 72.6 kg

DRUGS (3)
  1. WELLBUTRIN XL [Concomitant]
     Indication: BIPOLAR II DISORDER
  2. LAMICTAL [Concomitant]
     Indication: BIPOLAR II DISORDER
  3. SEROQUEL XR [Suspect]
     Indication: BIPOLAR II DISORDER
     Route: 048
     Dates: start: 20110124

REACTIONS (1)
  - CATARACT [None]
